FAERS Safety Report 8622252 (Version 2)
Quarter: 2013Q1

REPORT INFORMATION
  Report Type: Spontaneous
  Country: US (occurrence: US)
  Receive Date: 20120619
  Receipt Date: 20130322
  Transmission Date: 20140127
  Serious: Yes (Hospitalization)
  Sender: FDA-Public Use
  Company Number: US-ROCHE-1076630

PATIENT
  Age: 64 Year
  Sex: Female

DRUGS (6)
  1. BONIVA [Suspect]
     Indication: OSTEOPOROSIS
     Route: 048
     Dates: end: 20110209
  2. FOSAMAX [Suspect]
     Indication: OSTEOPOROSIS
     Route: 065
  3. PREDNISONE [Concomitant]
  4. ADVAIR [Concomitant]
  5. PROVENTIL [Concomitant]
  6. FLONASE [Concomitant]

REACTIONS (2)
  - Femur fracture [Unknown]
  - Stress fracture [Unknown]
